FAERS Safety Report 24729082 (Version 2)
Quarter: 2025Q3

REPORT INFORMATION
  Report Type: Report from Study
  Country: US (occurrence: US)
  Receive Date: 20241213
  Receipt Date: 20250809
  Transmission Date: 20251020
  Serious: Yes (Other)
  Sender: ALEXION PHARMACEUTICALS
  Company Number: US-AstraZeneca-CH-00761807A

PATIENT
  Sex: Female

DRUGS (1)
  1. CALQUENCE [Suspect]
     Active Substance: ACALABRUTINIB
     Indication: Chronic lymphocytic leukaemia
     Dosage: 100 MILLIGRAM, Q12H
     Dates: start: 20220812

REACTIONS (7)
  - Thrombosis [Unknown]
  - Open fracture [Unknown]
  - Blood sodium decreased [Unknown]
  - Diarrhoea [Unknown]
  - Cough [Unknown]
  - COVID-19 [Unknown]
  - Peripheral swelling [Unknown]
